FAERS Safety Report 6999536-9 (Version None)
Quarter: 2010Q3

REPORT INFORMATION
  Report Type: 
  Country: None (occurrence: None)
  Receive Date: 20100920
  Receipt Date: 20070517
  Transmission Date: 20110219
  Serious: Yes (Other)
  Sender: FDA-Public Use
  Company Number: US-ASTRAZENECA-2006UW11770

PATIENT
  Age: 46 Year
  Sex: Female
  Weight: 111.1 kg

DRUGS (23)
  1. SEROQUEL [Suspect]
     Indication: DEPRESSION
     Dosage: 25 MG, 100 MG
     Route: 048
     Dates: start: 20040610, end: 20071008
  2. SEROQUEL [Suspect]
     Indication: INSOMNIA
     Dosage: 25 MG, 100 MG
     Route: 048
     Dates: start: 20040610, end: 20071008
  3. SEROQUEL [Suspect]
     Route: 048
     Dates: start: 20040802, end: 20061001
  4. SEROQUEL [Suspect]
     Route: 048
     Dates: start: 20040802, end: 20061001
  5. SEROQUEL [Suspect]
     Dosage: 25MG -200MG
     Route: 048
     Dates: start: 20040610
  6. SEROQUEL [Suspect]
     Dosage: 25MG -200MG
     Route: 048
     Dates: start: 20040610
  7. PAXIL [Concomitant]
  8. LEXAPRO [Concomitant]
     Indication: DEPRESSION
     Dates: start: 20030301, end: 20040201
  9. LEXAPRO [Concomitant]
     Dates: start: 20040324
  10. CELEXA [Concomitant]
     Dates: start: 19990801, end: 20021101
  11. PROZAC [Concomitant]
     Dates: start: 20001001, end: 20001101
  12. LORAZEPAM [Concomitant]
     Dates: start: 19950101, end: 20070101
  13. AMITRIPTYLINE HCL [Concomitant]
     Dates: start: 19950901, end: 20001001
  14. TRAZODONE HCL [Concomitant]
     Dates: start: 20021001, end: 20021201
  15. WELLBUTRIN [Concomitant]
     Dates: start: 20000101
  16. PHENTERMINE [Concomitant]
     Dates: start: 19950801, end: 19970601
  17. AMBIEN [Concomitant]
     Indication: SLEEP DISORDER
     Dates: start: 19991103
  18. CELEBREX [Concomitant]
     Indication: ARTHRITIS
     Dates: start: 19991103
  19. ALLEGRA [Concomitant]
     Indication: DIZZINESS
     Dosage: EVERY MORNING, AT NIGHT
     Dates: start: 19991103
  20. MECLIZINE [Concomitant]
     Indication: VERTIGO
     Dates: start: 20010307
  21. NEURONTIN [Concomitant]
     Indication: PAIN
     Dates: start: 20040324
  22. GLUCOTROL [Concomitant]
     Dosage: 1MG -10MG
     Dates: start: 19960916
  23. NEFAZODONE HCL [Concomitant]
     Dates: start: 20040401

REACTIONS (9)
  - BACK DISORDER [None]
  - BIPOLAR DISORDER [None]
  - DEPRESSION [None]
  - DIABETES MELLITUS [None]
  - DIABETIC KETOACIDOSIS [None]
  - GESTATIONAL DIABETES [None]
  - GLYCOSURIA [None]
  - HYPERGLYCAEMIA [None]
  - OBESITY [None]
